FAERS Safety Report 10328049 (Version 1)
Quarter: 2014Q3

REPORT INFORMATION
  Report Type: Spontaneous
  Country: EE (occurrence: EE)
  Receive Date: 20140721
  Receipt Date: 20140721
  Transmission Date: 20150326
  Serious: Yes (Other)
  Sender: FDA-Public Use
  Company Number: EE-MERCK-1407EST007008

PATIENT
  Age: 46 Year
  Sex: Male

DRUGS (9)
  1. REBETOL [Suspect]
     Active Substance: RIBAVIRIN
     Dosage: 800 MG, UNK
  2. REBETOL [Suspect]
     Active Substance: RIBAVIRIN
     Dosage: 600 MG, UNK
  3. REBETOL [Suspect]
     Active Substance: RIBAVIRIN
     Dosage: 600-800 MG
     Dates: start: 20120621
  4. PEGINTRON [Suspect]
     Active Substance: PEGINTERFERON ALFA-2B
     Dosage: UNK
     Dates: start: 20120330
  5. REBETOL [Suspect]
     Active Substance: RIBAVIRIN
     Dosage: 600 MG, BID
     Route: 048
  6. REBETOL [Suspect]
     Active Substance: RIBAVIRIN
     Dosage: UNK
  7. PEGINTRON [Suspect]
     Active Substance: PEGINTERFERON ALFA-2B
     Dosage: 100-120
     Dates: start: 20120621
  8. REBETOL [Suspect]
     Active Substance: RIBAVIRIN
     Dosage: 750 MG, THRICE
     Route: 048
  9. INCIVO [Concomitant]
     Active Substance: TELAPREVIR
     Dosage: UNK
     Dates: start: 20120330

REACTIONS (9)
  - Cough [Recovered/Resolved]
  - Renal failure [Recovered/Resolved]
  - Weight decreased [Recovered/Resolved]
  - Pyrexia [Recovered/Resolved]
  - Fatigue [Recovered/Resolved]
  - Cough [Unknown]
  - Stomatitis [Unknown]
  - Nausea [Recovered/Resolved]
  - Asthenia [Recovered/Resolved]

NARRATIVE: CASE EVENT DATE: 20120410
